FAERS Safety Report 6868372-6 (Version None)
Quarter: 2010Q3

REPORT INFORMATION
  Report Type: 
  Country: None (occurrence: None)
  Receive Date: 20100722
  Receipt Date: 20081013
  Transmission Date: 20110219
  Serious: Yes (Other)
  Sender: FDA-Public Use
  Company Number: US-PFIZER INC-2008040387

PATIENT
  Sex: Male
  Weight: 108.9 kg

DRUGS (18)
  1. CHANTIX [Suspect]
     Route: 048
     Dates: start: 20080328, end: 20080101
  2. TRAZODONE [Concomitant]
     Indication: INSOMNIA
     Dosage: 1 TO 2 TABLETS AT BEDTIME
     Route: 048
  3. HYDROCODONE [Concomitant]
     Route: 048
  4. OMEPRAZOLE [Concomitant]
     Indication: PROPHYLAXIS
     Route: 048
  5. NAPROXEN [Concomitant]
     Indication: PAIN
     Route: 048
  6. NAPROXEN [Concomitant]
     Indication: INFLAMMATION
  7. SIMVASTATIN [Concomitant]
     Indication: BLOOD CHOLESTEROL
     Route: 048
  8. GEMFIBROZIL [Concomitant]
     Indication: BLOOD CHOLESTEROL
     Route: 048
  9. METHOCARBAMOL [Concomitant]
     Indication: MUSCLE SPASMS
     Route: 048
  10. EFFEXOR XR [Concomitant]
     Route: 048
  11. LORATADINE [Concomitant]
     Indication: HYPERSENSITIVITY
     Route: 048
  12. ACETYLSALICYLIC ACID [Concomitant]
     Route: 048
  13. ZETIA [Concomitant]
  14. ACETAMINOPHEN AND HYDROCODONE BITARTRATE [Concomitant]
  15. SKELAXIN [Concomitant]
  16. CARISOPRODOL [Concomitant]
  17. AZITHROMYCIN [Concomitant]
     Dates: start: 20070320, end: 20070325
  18. LOTRISONE [Concomitant]

REACTIONS (3)
  - HEADACHE [None]
  - MENTAL STATUS CHANGES [None]
  - TRANSIENT GLOBAL AMNESIA [None]
